FAERS Safety Report 12171074 (Version 3)
Quarter: 2016Q2

REPORT INFORMATION
  Report Type: Report from Study
  Country: CH (occurrence: CH)
  Receive Date: 20160311
  Receipt Date: 20160413
  Transmission Date: 20160815
  Serious: Yes (Death)
  Sender: FDA-Public Use
  Company Number: PHHY2016CH032852

PATIENT
  Age: 43 Year
  Sex: Female
  Weight: 37 kg

DRUGS (1)
  1. LDK378 [Suspect]
     Active Substance: CERITINIB
     Indication: NON-SMALL CELL LUNG CANCER
     Dosage: 2 DF, QD
     Route: 048
     Dates: start: 20160208

REACTIONS (1)
  - Pneumonia aspiration [Fatal]
